FAERS Safety Report 17664633 (Version 2)
Quarter: 2020Q2

REPORT INFORMATION
  Report Type: Report from Study
  Country: ES (occurrence: ES)
  Receive Date: 20200414
  Receipt Date: 20200416
  Transmission Date: 20200713
  Serious: Yes (Death)
  Sender: FDA-Public Use
  Company Number: ES-PFIZER INC-2020151181

PATIENT
  Age: 48 Year
  Sex: Male

DRUGS (3)
  1. PYRIMETHAMINE\SULFADIAZINE [Suspect]
     Active Substance: PYRIMETHAMINE\SULFADIAZINE
     Indication: TOXOPLASMOSIS
     Dosage: UNK
  2. ATOVAQUONE. [Concomitant]
     Active Substance: ATOVAQUONE
     Indication: TOXOPLASMOSIS PROPHYLAXIS
     Dosage: UNK
  3. CLINDAMYCIN. [Suspect]
     Active Substance: CLINDAMYCIN
     Indication: TOXOPLASMOSIS
     Dosage: UNK

REACTIONS (1)
  - Drug ineffective [Fatal]
